FAERS Safety Report 10077459 (Version 2)
Quarter: 2014Q3

REPORT INFORMATION
  Report Type: Spontaneous
  Country: US (occurrence: US)
  Receive Date: 20140414
  Receipt Date: 20140710
  Transmission Date: 20150326
  Serious: No
  Sender: FDA-Public Use
  Company Number: US-009507513-1404USA008026

PATIENT
  Age: 18 Year
  Sex: Female
  Weight: 84.35 kg

DRUGS (1)
  1. NEXPLANON [Suspect]
     Active Substance: ETONOGESTREL
     Indication: CONTRACEPTION
     Dosage: RIGHT ARM, 1 ROD / 3YEARS
     Route: 059
     Dates: start: 20140326

REACTIONS (4)
  - Rash erythematous [Unknown]
  - Implant site erythema [Unknown]
  - Implant site rash [Unknown]
  - Rash papular [Unknown]

NARRATIVE: CASE EVENT DATE: 20140330
